FAERS Safety Report 19216189 (Version 4)
Quarter: 2024Q3

REPORT INFORMATION
  Report Type: Report from Study
  Country: FR (occurrence: FR)
  Receive Date: 20210505
  Receipt Date: 20240914
  Transmission Date: 20241016
  Serious: Yes (Hospitalization, Other)
  Sender: ROCHE
  Company Number: FR-SEATTLE GENETICS-2021SGN02205

PATIENT
  Age: 50 Year
  Sex: Female
  Weight: 126.0 kg

DRUGS (9)
  1. TRASTUZUMAB [Suspect]
     Active Substance: TRASTUZUMAB
     Indication: HER2 positive breast cancer
     Route: 041
     Dates: start: 20210312
  2. TRASTUZUMAB [Suspect]
     Active Substance: TRASTUZUMAB
     Route: 041
     Dates: start: 20210219
  3. CAPECITABINE [Suspect]
     Active Substance: CAPECITABINE
     Indication: HER2 positive breast cancer
     Dosage: 1000 MG/M2, BID
     Route: 048
     Dates: start: 20210219
  4. CAPECITABINE [Suspect]
     Active Substance: CAPECITABINE
     Dosage: 1000 MG/M2, BID
     Route: 048
     Dates: start: 20210430
  5. TUCATINIB [Suspect]
     Active Substance: TUCATINIB
     Indication: HER2 positive breast cancer
     Route: 048
     Dates: start: 20210219
  6. TUCATINIB [Suspect]
     Active Substance: TUCATINIB
     Route: 048
     Dates: start: 20210325
  7. TUCATINIB [Suspect]
     Active Substance: TUCATINIB
     Route: 048
     Dates: start: 20240414
  8. METOCLOPRAMIDE [Concomitant]
     Active Substance: METOCLOPRAMIDE
  9. PREGABALIN [Concomitant]
     Active Substance: PREGABALIN
     Route: 065

REACTIONS (4)
  - Hyperbilirubinaemia [Recovered/Resolved]
  - Neutropenia [Unknown]
  - Hepatic cytolysis [Recovered/Resolved]
  - Thrombocytopenia [Unknown]

NARRATIVE: CASE EVENT DATE: 20210317
